FAERS Safety Report 13627327 (Version 1)
Quarter: 2017Q2

REPORT INFORMATION
  Report Type: Spontaneous
  Country: GR (occurrence: GR)
  Receive Date: 20170607
  Receipt Date: 20170607
  Transmission Date: 20170830
  Serious: Yes (Death, Other)
  Sender: FDA-Public Use
  Company Number: PHHY2017GR080511

PATIENT
  Sex: Female

DRUGS (1)
  1. VOLTAREN FORTE [Suspect]
     Active Substance: DICLOFENAC SODIUM
     Indication: MYALGIA
     Route: 065

REACTIONS (2)
  - Death [Fatal]
  - Thermal burn [Unknown]
